FAERS Safety Report 8045817-X (Version None)
Quarter: 2012Q1

REPORT INFORMATION
  Report Type: 
  Country: None (occurrence: None)
  Receive Date: 20120113
  Receipt Date: 20120111
  Transmission Date: 20120608
  Serious: Yes (Other)
  Sender: FDA-Public Use
  Company Number: US-PFIZER INC-2011283252

PATIENT
  Sex: Female
  Weight: 90 kg

DRUGS (7)
  1. CHANTIX [Suspect]
     Indication: SMOKING CESSATION THERAPY
     Dosage: 1 MG, 2X/DAY
     Route: 048
     Dates: start: 20111114, end: 20111101
  2. PROZAC [Concomitant]
     Indication: ANXIETY
     Dosage: 20 MG, DAILY
  3. VALIUM [Concomitant]
     Dosage: UNK
  4. METFORMIN [Concomitant]
     Indication: DIABETES MELLITUS
     Dosage: 1000 MG, DAILY
  5. NORVASC [Concomitant]
     Indication: HYPERTENSION
     Dosage: 20 MG, UNK
  6. QUINAPRIL [Concomitant]
     Indication: HYPERTENSION
     Dosage: 20 MG, DAILY
  7. PROZAC [Concomitant]
     Indication: DEPRESSION

REACTIONS (10)
  - ABNORMAL DREAMS [None]
  - HYPERTENSION [None]
  - NAUSEA [None]
  - VOMITING [None]
  - HALLUCINATION [None]
  - MALAISE [None]
  - MOOD ALTERED [None]
  - HEADACHE [None]
  - DIARRHOEA [None]
  - ILLUSION [None]
